FAERS Safety Report 17551168 (Version 2)
Quarter: 2020Q4

REPORT INFORMATION
  Report Type: Report from Study
  Country: JP (occurrence: JP)
  Receive Date: 20200317
  Receipt Date: 20201029
  Transmission Date: 20210113
  Serious: Yes (Hospitalization)
  Sender: FDA-Public Use
  Company Number: JP-JNJFOC-20190917750

PATIENT
  Age: 65 Year
  Sex: Male
  Weight: 59.6 kg

DRUGS (44)
  1. DARATUMUMAB [Suspect]
     Active Substance: DARATUMUMAB
     Route: 041
     Dates: start: 20180904, end: 20190709
  2. LANSOPRAZOLE TOWA [Concomitant]
     Active Substance: LANSOPRAZOLE
     Indication: PROPHYLAXIS
     Dosage: 15 MILLIGRAM
     Route: 048
     Dates: start: 20160120
  3. ITRACONAZOLE. [Concomitant]
     Active Substance: ITRACONAZOLE
     Indication: HISTOPLASMOSIS
  4. ITRACONAZOLE. [Concomitant]
     Active Substance: ITRACONAZOLE
     Indication: FUNGAL INFECTION
  5. ITRACONAZOLE. [Concomitant]
     Active Substance: ITRACONAZOLE
     Indication: TINEA VERSICOLOUR
  6. ITRACONAZOLE. [Concomitant]
     Active Substance: ITRACONAZOLE
     Indication: SYSTEMIC MYCOSIS
  7. NORMAL SALINE [Concomitant]
     Active Substance: SODIUM CHLORIDE
     Route: 042
     Dates: start: 20180320
  8. CARFILZOMIB [Suspect]
     Active Substance: CARFILZOMIB
     Route: 042
     Dates: start: 20190219, end: 20190710
  9. ITRACONAZOLE. [Concomitant]
     Active Substance: ITRACONAZOLE
     Indication: ANTIFUNGAL PROPHYLAXIS
  10. ITRACONAZOLE. [Concomitant]
     Active Substance: ITRACONAZOLE
     Indication: CANDIDA INFECTION
  11. ITRACONAZOLE. [Concomitant]
     Active Substance: ITRACONAZOLE
     Indication: MENINGITIS CRYPTOCOCCAL
  12. MONTELUKAST KM [Concomitant]
     Active Substance: MONTELUKAST SODIUM
     Dosage: 10 MILLIGRAM
     Route: 048
     Dates: start: 20180320
  13. RESTAMIN                           /00000402/ [Concomitant]
     Active Substance: DIPHENHYDRAMINE HYDROCHLORIDE
     Dosage: 40 MILLIGRAM
     Route: 065
     Dates: start: 20180320
  14. DARATUMUMAB [Suspect]
     Active Substance: DARATUMUMAB
     Route: 041
     Dates: start: 20191001
  15. ITRACONAZOLE. [Concomitant]
     Active Substance: ITRACONAZOLE
     Indication: ASPERGILLUS INFECTION
  16. ITRACONAZOLE. [Concomitant]
     Active Substance: ITRACONAZOLE
     Indication: BLASTOMYCOSIS
  17. ITRACONAZOLE. [Concomitant]
     Active Substance: ITRACONAZOLE
     Indication: ORAL CANDIDIASIS
  18. ITRACONAZOLE. [Concomitant]
     Active Substance: ITRACONAZOLE
     Indication: PARACOCCIDIOIDES INFECTION
  19. CIPROXAN                           /00697202/ [Concomitant]
     Active Substance: CIPROFLOXACIN
     Indication: INFECTION PROPHYLAXIS
     Dosage: 100 MILLIGRAM
     Route: 048
     Dates: start: 20170904
  20. DARATUMUMAB [Suspect]
     Active Substance: DARATUMUMAB
     Route: 041
     Dates: start: 20180515, end: 20180903
  21. ITRACONAZOLE. [Concomitant]
     Active Substance: ITRACONAZOLE
     Indication: CRYPTOCOCCOSIS
  22. ITRACONAZOLE. [Concomitant]
     Active Substance: ITRACONAZOLE
     Indication: KERATITIS FUNGAL
  23. ZOVIRAX [Concomitant]
     Active Substance: ACYCLOVIR
     Indication: INFECTION PROPHYLAXIS
     Dosage: 200 MILLIGRAM
     Route: 048
     Dates: start: 20160120
  24. MEDROL [Concomitant]
     Active Substance: METHYLPREDNISOLONE
     Dosage: 20 MILLIGRAM
     Route: 048
     Dates: start: 20180323
  25. ITRACONAZOLE. [Concomitant]
     Active Substance: ITRACONAZOLE
     Indication: INFECTION PROPHYLAXIS
     Dosage: 100 MILLIGRAM
     Route: 048
     Dates: start: 20160120
  26. ITRACONAZOLE. [Concomitant]
     Active Substance: ITRACONAZOLE
     Indication: VULVOVAGINAL CANDIDIASIS
  27. ITRACONAZOLE. [Concomitant]
     Active Substance: ITRACONAZOLE
     Indication: SPOROTRICHOSIS
  28. MAGMITT [Concomitant]
     Active Substance: MAGNESIUM OXIDE
     Dosage: 660 MILLIGRAM
     Route: 048
     Dates: start: 20170908
  29. CALONAL [Concomitant]
     Active Substance: ACETAMINOPHEN
     Dosage: 800 MILLIGRAM
     Route: 048
     Dates: start: 20180320
  30. CARFILZOMIB [Suspect]
     Active Substance: CARFILZOMIB
     Indication: PLASMA CELL MYELOMA
     Route: 041
     Dates: start: 20180320, end: 20180321
  31. CARFILZOMIB [Suspect]
     Active Substance: CARFILZOMIB
     Route: 042
     Dates: start: 20180327, end: 20190204
  32. DEXAMETHASONE. [Concomitant]
     Active Substance: DEXAMETHASONE
     Route: 065
     Dates: start: 20191001
  33. ITRACONAZOLE. [Concomitant]
     Active Substance: ITRACONAZOLE
     Indication: CHROMOBLASTOMYCOSIS
  34. ITRACONAZOLE. [Concomitant]
     Active Substance: ITRACONAZOLE
     Indication: ONYCHOMYCOSIS
  35. ITRACONAZOLE. [Concomitant]
     Active Substance: ITRACONAZOLE
     Indication: TINEA MANUUM
  36. DARATUMUMAB [Suspect]
     Active Substance: DARATUMUMAB
     Indication: PLASMA CELL MYELOMA
     Route: 041
     Dates: start: 20180320, end: 20180321
  37. DARATUMUMAB [Suspect]
     Active Substance: DARATUMUMAB
     Route: 041
     Dates: start: 20180327, end: 20180410
  38. DARATUMUMAB [Suspect]
     Active Substance: DARATUMUMAB
     Route: 041
     Dates: start: 20180417, end: 20180514
  39. DEXAMETHASONE. [Concomitant]
     Active Substance: DEXAMETHASONE
     Route: 065
     Dates: start: 20180320, end: 20190710
  40. ITRACONAZOLE. [Concomitant]
     Active Substance: ITRACONAZOLE
     Indication: TINEA PEDIS
  41. FEBUXOSTAT. [Concomitant]
     Active Substance: FEBUXOSTAT
     Indication: PROPHYLAXIS
     Dosage: 10 MILLIGRAM
     Route: 048
     Dates: start: 20170904
  42. SOL-MELCORT [Concomitant]
     Active Substance: METHYLPREDNISOLONE SODIUM SUCCINATE
     Dosage: 125 MILLIGRAM
     Route: 042
     Dates: start: 20181225
  43. ITRACONAZOLE. [Concomitant]
     Active Substance: ITRACONAZOLE
     Indication: OESOPHAGEAL CANDIDIASIS
  44. ITRACONAZOLE. [Concomitant]
     Active Substance: ITRACONAZOLE
     Indication: SYSTEMIC CANDIDA

REACTIONS (1)
  - Spinal osteoarthritis [Recovered/Resolved]

NARRATIVE: CASE EVENT DATE: 20190711
